FAERS Safety Report 8362489-5 (Version None)
Quarter: 2012Q2

REPORT INFORMATION
  Report Type: 
  Country: None (occurrence: None)
  Receive Date: 20120514
  Receipt Date: 20120514
  Transmission Date: 20120825
  Serious: Yes (Hospitalization)
  Sender: FDA-Public Use
  Company Number: None

PATIENT
  Age: 68 Year
  Sex: Male
  Weight: 97 kg

DRUGS (1)
  1. DEXMEDETOMIDINE HYDROCHLORIDE [Suspect]
     Indication: SEDATIVE THERAPY
     Dosage: 0.6MCG/KG/HR CONTINUOUS INFUSIO IV DRIP
     Route: 041
     Dates: start: 20120418, end: 20120419

REACTIONS (2)
  - PYREXIA [None]
  - UNRESPONSIVE TO STIMULI [None]
